FAERS Safety Report 6191107-X (Version None)
Quarter: 2009Q2

REPORT INFORMATION
  Report Type: 
  Country: None (occurrence: None)
  Receive Date: 20090515
  Receipt Date: 20090507
  Transmission Date: 20091009
  Serious: Yes (Life-Threatening)
  Sender: FDA-Public Use
  Company Number: GB-TEVA-194697ISR

PATIENT
  Age: 72 Year
  Sex: Male
  Weight: 61 kg

DRUGS (3)
  1. WARFARIN SODIUM [Suspect]
     Route: 048
     Dates: start: 20090101
  2. DEXAMETHASONE 4MG TAB [Suspect]
     Indication: MULTIPLE MYELOMA
     Dates: start: 20090101
  3. THALIDOMIDE [Suspect]
     Indication: MULTIPLE MYELOMA
     Dates: start: 20090101

REACTIONS (3)
  - DRUG INTERACTION [None]
  - INTERNATIONAL NORMALISED RATIO DECREASED [None]
  - INTESTINAL ISCHAEMIA [None]
